FAERS Safety Report 11783038 (Version 1)
Quarter: 2015Q4

REPORT INFORMATION
  Report Type: Report from Study
  Country: CA (occurrence: CA)
  Receive Date: 20151127
  Receipt Date: 20151127
  Transmission Date: 20160305
  Serious: Yes (Hospitalization, Other)
  Sender: FDA-Public Use
  Company Number: CA-JNJFOC-20151124263

PATIENT
  Age: 65 Year
  Sex: Male
  Weight: 68 kg

DRUGS (7)
  1. REMICADE [Suspect]
     Active Substance: INFLIXIMAB
     Indication: CROHN^S DISEASE
     Route: 042
     Dates: start: 20130702
  2. PROTOPIC [Concomitant]
     Active Substance: TACROLIMUS
     Route: 065
  3. WARFARIN [Concomitant]
     Active Substance: WARFARIN
     Route: 048
  4. HYDROPHILIC [Concomitant]
     Route: 065
  5. VITAMIN B12 [Concomitant]
     Active Substance: CYANOCOBALAMIN
     Route: 050
  6. SYNTHROID [Concomitant]
     Active Substance: LEVOTHYROXINE SODIUM
     Route: 065
  7. TECTA [Concomitant]
     Active Substance: PANTOPRAZOLE MAGNESIUM
     Route: 065

REACTIONS (4)
  - Gallbladder disorder [Unknown]
  - General physical health deterioration [Unknown]
  - Pneumonia [Recovered/Resolved]
  - Systemic lupus erythematosus [Unknown]

NARRATIVE: CASE EVENT DATE: 20150930
